FAERS Safety Report 10792042 (Version 2)
Quarter: 2018Q3

REPORT INFORMATION
  Report Type: Spontaneous
  Country: CA (occurrence: CA)
  Receive Date: 20150213
  Receipt Date: 20180711
  Transmission Date: 20181010
  Serious: Yes (Other)
  Sender: FDA-Public Use
  Company Number: CA-009507513-1502CAN005376

PATIENT
  Age: 46 Year
  Sex: Male
  Weight: 87.53 kg

DRUGS (6)
  1. PEGASYS RBV [Concomitant]
     Active Substance: PEGINTERFERON ALFA-2A\RIBAVIRIN
     Dosage: 180 MICROGRAM, QW
     Route: 048
  2. INCIVEK [Concomitant]
     Active Substance: TELAPREVIR
     Dosage: 1125 MG, Q12H
     Route: 048
  3. ISENTRESS [Suspect]
     Active Substance: RALTEGRAVIR POTASSIUM
     Indication: HIV INFECTION
     Dosage: 1 TABLET, BID
     Route: 048
     Dates: start: 20130527, end: 20140407
  4. RIBAVIRIN. [Concomitant]
     Active Substance: RIBAVIRIN
     Dosage: 600 MG, QPM
  5. METHADONE HYDROCHLORIDE. [Concomitant]
     Active Substance: METHADONE HYDROCHLORIDE
     Dosage: 180 MG, QD
     Route: 065
  6. RIBAVIRIN. [Concomitant]
     Active Substance: RIBAVIRIN
     Dosage: 600 MG, QAM

REACTIONS (5)
  - Myalgia [Recovered/Resolved]
  - Rhabdomyolysis [Recovered/Resolved]
  - Blood creatinine increased [Recovered/Resolved]
  - Asthenia [Recovered/Resolved]
  - Myositis [Recovered/Resolved]

NARRATIVE: CASE EVENT DATE: 20140205
